FAERS Safety Report 7125074-9 (Version None)
Quarter: 2010Q4

REPORT INFORMATION
  Report Type: 
  Country: None (occurrence: None)
  Receive Date: 20101129
  Receipt Date: 20101015
  Transmission Date: 20110411
  Serious: Yes (Hospitalization, Other)
  Sender: FDA-Public Use
  Company Number: US-AMGEN-KDL439736

PATIENT

DRUGS (7)
  1. ENBREL [Suspect]
     Indication: PSORIATIC ARTHROPATHY
     Dosage: 50 MG, QWK
     Route: 058
     Dates: start: 20090901
  2. ENBREL [Suspect]
     Indication: PSORIASIS
  3. METHOTREXATE [Concomitant]
     Dosage: 15 MG, QWK
  4. NEXIUM [Concomitant]
     Dosage: 40 UNK, QD
  5. CYMBALTA [Concomitant]
     Dosage: 60 MG, QD
  6. FOLIC ACID [Concomitant]
     Dosage: 1 MG, QD
  7. NEXIUM [Concomitant]

REACTIONS (12)
  - BRONCHITIS [None]
  - CEREBROVASCULAR ACCIDENT [None]
  - CONFUSIONAL STATE [None]
  - HEADACHE [None]
  - HYPOAESTHESIA FACIAL [None]
  - MALAISE [None]
  - MENTAL STATUS CHANGES [None]
  - MIGRAINE [None]
  - PSORIATIC ARTHROPATHY [None]
  - SINUSITIS [None]
  - TRANSIENT ISCHAEMIC ATTACK [None]
  - UPPER RESPIRATORY TRACT INFECTION [None]
